FAERS Safety Report 9650085 (Version 2)
Quarter: 2013Q4

REPORT INFORMATION
  Report Type: Spontaneous
  Country: US (occurrence: US)
  Receive Date: 20131028
  Receipt Date: 20131028
  Transmission Date: 20140711
  Serious: Yes (Other)
  Sender: FDA-Public Use
  Company Number: US-PURDUE-USA-2012-0094440

PATIENT
  Sex: Male

DRUGS (2)
  1. OXYCONTIN (NDA 22-272) [Suspect]
     Indication: PAIN
     Dosage: 80 MG, QID
     Route: 048
  2. OXYCODONE HCL IMMEDIATE RELEASE (91-490) [Suspect]
     Indication: BREAKTHROUGH PAIN
     Dosage: 30 MG TABLET; BID
     Route: 048

REACTIONS (3)
  - Drug dependence [Unknown]
  - Hypoaesthesia [Recovered/Resolved]
  - Inadequate analgesia [Unknown]
